FAERS Safety Report 6016905-4 (Version None)
Quarter: 2008Q4

REPORT INFORMATION
  Report Type: 
  Country: None (occurrence: None)
  Receive Date: 20081222
  Receipt Date: 20081212
  Transmission Date: 20090506
  Serious: Yes (Other)
  Sender: FDA-Public Use
  Company Number: CH-GILEAD-2008-0019254

PATIENT
  Age: 43 Year
  Sex: Female

DRUGS (4)
  1. VIREAD [Suspect]
     Indication: HIV INFECTION
     Route: 048
     Dates: start: 20050101, end: 20070101
  2. COMBIVIR [Concomitant]
     Indication: HIV INFECTION
     Route: 048
  3. LOPINAVIR [Concomitant]
     Indication: HIV INFECTION
     Route: 048
  4. SAQUINAVIR [Concomitant]
     Indication: HIV INFECTION
     Route: 048

REACTIONS (3)
  - OSTEOPOROSIS [None]
  - PATHOLOGICAL FRACTURE [None]
  - THORACIC VERTEBRAL FRACTURE [None]
